FAERS Safety Report 9819191 (Version 2)
Quarter: 2014Q1

REPORT INFORMATION
  Report Type: Spontaneous
  Country: US (occurrence: US)
  Receive Date: 20140115
  Receipt Date: 20140116
  Transmission Date: 20141002
  Serious: Yes (Death, Life-Threatening, Hospitalization, Other)
  Sender: FDA-Public Use
  Company Number: US-009507513-1401USA004914

PATIENT
  Sex: Female
  Weight: 95.24 kg

DRUGS (8)
  1. JANUVIA [Suspect]
     Indication: TYPE 2 DIABETES MELLITUS
     Dosage: 100 MG, QD
     Route: 048
     Dates: start: 20090930, end: 20100401
  2. JANUVIA [Suspect]
     Dosage: 100 MG, QD
     Route: 048
     Dates: start: 20110608, end: 20120112
  3. JANUVIA [Suspect]
     Dosage: 100 MG, QD
     Route: 048
     Dates: start: 20120208, end: 20120309
  4. TRADJENTA [Suspect]
     Indication: TYPE 2 DIABETES MELLITUS
     Dosage: 5 MG, QD
     Dates: start: 20120618, end: 20121005
  5. METFORMIN [Concomitant]
     Indication: TYPE 2 DIABETES MELLITUS
     Dosage: 500 MG, BID
     Route: 048
  6. GLUCOPHAGE [Concomitant]
     Indication: TYPE 2 DIABETES MELLITUS
     Dosage: 500 MG, BID
     Route: 048
  7. GLYBURIDE [Concomitant]
     Indication: TYPE 2 DIABETES MELLITUS
     Dosage: 5 MG, QD
     Route: 048
  8. WELLBUTRIN [Concomitant]
     Indication: BIPOLAR DISORDER
     Dosage: 200 MG, Q12H
     Route: 048

REACTIONS (18)
  - Pancreatic carcinoma metastatic [Fatal]
  - Metastases to liver [Fatal]
  - Bile duct stent insertion [Unknown]
  - Pneumobilia [Unknown]
  - Pancreatitis [Unknown]
  - Blood glucose increased [Recovering/Resolving]
  - Inappropriate schedule of drug administration [Unknown]
  - Chest pain [Recovered/Resolved]
  - Uterine leiomyoma [Unknown]
  - Osteoarthritis [Unknown]
  - Bone cyst [Unknown]
  - Infection [Unknown]
  - Blood cholesterol increased [Unknown]
  - Hypertension [Unknown]
  - Tonsillectomy [Unknown]
  - Sleep apnoea syndrome [Unknown]
  - Hypothyroidism [Unknown]
  - Attention deficit/hyperactivity disorder [Unknown]
